FAERS Safety Report 6983712-5 (Version None)
Quarter: 2010Q3

REPORT INFORMATION
  Report Type: 
  Country: None (occurrence: None)
  Receive Date: 20100914
  Receipt Date: 20020314
  Transmission Date: 20110219
  Serious: Yes (Hospitalization)
  Sender: FDA-Public Use
  Company Number: US-WYE-H07126808

PATIENT
  Age: 49 Year
  Sex: Male
  Weight: 82 kg

DRUGS (3)
  1. ADVIL LIQUI-GELS [Suspect]
     Route: 048
  2. ASPIRIN [Suspect]
     Dosage: UNKNOWN
     Route: 048
  3. CYCLOBENZAPRINE [Concomitant]
     Dosage: UNKNOWN
     Route: 065

REACTIONS (4)
  - ABDOMINAL PAIN [None]
  - DUODENAL ULCER [None]
  - OVERDOSE [None]
  - RECTAL HAEMORRHAGE [None]
